FAERS Safety Report 13098103 (Version 1)
Quarter: 2017Q1

REPORT INFORMATION
  Report Type: Spontaneous
  Country: NL (occurrence: NL)
  Receive Date: 20170109
  Receipt Date: 20170109
  Transmission Date: 20170428
  Serious: Yes (Hospitalization, Other)
  Sender: FDA-Public Use
  Company Number: NL-EDGEMONT-2016EDG00041

PATIENT
  Age: 19 Year
  Sex: Male

DRUGS (1)
  1. BUPROPION EXTENDED-RELEASE TABLETS [Suspect]
     Active Substance: BUPROPION HYDROCHLORIDE
     Dosage: 9000 MG, ONCE (300 MG X 30 PILLS)
     Route: 065

REACTIONS (4)
  - Seizure [Recovered/Resolved]
  - Priapism [Recovered/Resolved]
  - Intentional overdose [Recovered/Resolved]
  - Serotonin syndrome [Recovered/Resolved]
